FAERS Safety Report 24928626 (Version 1)
Quarter: 2025Q1

REPORT INFORMATION
  Report Type: Spontaneous
  Country: PL (occurrence: PL)
  Receive Date: 20250205
  Receipt Date: 20250205
  Transmission Date: 20250409
  Serious: Yes (Other)
  Sender: AMGEN
  Company Number: None

PATIENT
  Age: 60 Year
  Sex: Male
  Weight: 68 kg

DRUGS (5)
  1. VECTIBIX [Suspect]
     Active Substance: PANITUMUMAB
     Indication: Colon cancer
     Dosage: UNK UNK, Q2WK,  6 MG /KG/MC
     Route: 040
     Dates: start: 20200427
  2. OXALIPLATIN [Concomitant]
     Active Substance: OXALIPLATIN
     Indication: Colon cancer
     Dosage: 85 MILLIGRAM/SQ. METER, Q2WK (EVERY 14 DAYS)
     Route: 040
     Dates: start: 20200427
  3. LEVOFOLIC [Concomitant]
     Indication: Colon cancer
     Dosage: 200 MILLIGRAM/SQ. METER, Q2WK (EVERY 14 DAYS)
     Route: 040
     Dates: start: 20200427
  4. FLUOROURACIL [Concomitant]
     Active Substance: FLUOROURACIL
     Indication: Colon cancer
     Dosage: 400 MILLIGRAM/SQ. METER, Q2WK, (EVERY 14 DAYS)
     Route: 040
     Dates: start: 20200427
  5. FLUOROURACIL [Concomitant]
     Active Substance: FLUOROURACIL
     Dosage: 2400 MILLIGRAM/SQ. METER, Q2WK (EVERY 14 DAYS)
     Route: 040
     Dates: start: 20200427

REACTIONS (3)
  - Hyperaesthesia [Recovering/Resolving]
  - Skin lesion [Recovering/Resolving]
  - Cheilitis [Recovering/Resolving]

NARRATIVE: CASE EVENT DATE: 20200703
